FAERS Safety Report 26146522 (Version 1)
Quarter: 2025Q4

REPORT INFORMATION
  Report Type: Spontaneous
  Country: US (occurrence: US)
  Receive Date: 20251211
  Receipt Date: 20251211
  Transmission Date: 20260118
  Serious: No
  Sender: FERRING
  Company Number: US-FERRINGPH-2025FE00224

PATIENT

DRUGS (1)
  1. MENOPUR [Suspect]
     Active Substance: FOLLITROPIN\LUTEINIZING HORMONE
     Indication: In vitro fertilisation
     Dosage: UNK
     Route: 065

REACTIONS (2)
  - Injection site pain [Unknown]
  - Injection site pain [Unknown]
